FAERS Safety Report 21603330 (Version 3)
Quarter: 2023Q2

REPORT INFORMATION
  Report Type: Spontaneous
  Country: AU (occurrence: AU)
  Receive Date: 20221116
  Receipt Date: 20230412
  Transmission Date: 20230721
  Serious: Yes (Life-Threatening, Hospitalization, Other)
  Sender: FDA-Public Use
  Company Number: AU-MLMSERVICE-20221110-3905430-1

PATIENT
  Age: 38 Year
  Sex: Male

DRUGS (4)
  1. METHYLPREDNISOLONE SODIUM SUCCINATE [Suspect]
     Active Substance: METHYLPREDNISOLONE SODIUM SUCCINATE
     Indication: Multisystem inflammatory syndrome
     Dosage: 1 G, 1X/DAY
     Route: 042
  2. TOCILIZUMAB [Suspect]
     Active Substance: TOCILIZUMAB
     Indication: Multisystem inflammatory syndrome
     Dosage: ON DAY 12, DAYS 14, 19, 26 AND 38
     Route: 042
  3. PREDNISOLONE [Suspect]
     Active Substance: PREDNISOLONE
     Indication: Multisystem inflammatory syndrome
     Dosage: 120 MG, 1X/DAY
     Route: 048
  4. COVID 19 VACCINE CHADOX1 [Concomitant]
     Dosage: 1ST DOSE

REACTIONS (4)
  - Multisystem inflammatory syndrome [Recovering/Resolving]
  - Condition aggravated [Recovering/Resolving]
  - Cytomegalovirus viraemia [Recovering/Resolving]
  - Off label use [Unknown]
